FAERS Safety Report 10248650 (Version 1)
Quarter: 2014Q2

REPORT INFORMATION
  Report Type: Spontaneous
  Country: US (occurrence: US)
  Receive Date: 20140620
  Receipt Date: 20140620
  Transmission Date: 20141212
  Serious: Yes (Other)
  Sender: FDA-Public Use
  Company Number: US-IROKO PRODUCTS LTD-US-I09001-14-00134

PATIENT
  Sex: Male
  Weight: 68 kg

DRUGS (6)
  1. INDOMETHACIN AMBIGUOUS [Suspect]
     Indication: INFLAMMATION
     Route: 048
  2. INDOMETHACIN AMBIGUOUS [Suspect]
     Route: 048
  3. AMPYRA [Suspect]
     Indication: GAIT DISTURBANCE
     Route: 048
  4. AMPYRA [Suspect]
     Indication: COGNITIVE DISORDER
  5. MARIJUANA [Suspect]
     Indication: PRODUCT USED FOR UNKNOWN INDICATION
     Route: 065
  6. RANITIDINE [Concomitant]
     Indication: PRODUCT USED FOR UNKNOWN INDICATION
     Route: 065

REACTIONS (4)
  - Multiple sclerosis [Not Recovered/Not Resolved]
  - Increased appetite [Unknown]
  - Weight increased [Unknown]
  - Duodenal ulcer [Recovering/Resolving]
